FAERS Safety Report 4449565-4 (Version None)
Quarter: 2004Q3

REPORT INFORMATION
  Report Type: 
  Country: None (occurrence: None)
  Receive Date: 20040913
  Receipt Date: 20040913
  Transmission Date: 20050211
  Serious: Yes (Life-Threatening, Hospitalization, Disabling)
  Sender: FDA-Public Use
  Company Number: None

PATIENT
  Age: 23 Year
  Sex: Female
  Weight: 77.1115 kg

DRUGS (2)
  1. LAMICTAL [Suspect]
     Indication: BIPOLAR I DISORDER
     Dosage: SEE IMAGE
     Route: 048
     Dates: start: 20040701, end: 20040722
  2. LAMICTAL [Suspect]
     Indication: BIPOLAR II DISORDER
     Dosage: SEE IMAGE
     Route: 048
     Dates: start: 20040701, end: 20040722

REACTIONS (1)
  - STEVENS-JOHNSON SYNDROME [None]
